FAERS Safety Report 11875972 (Version 1)
Quarter: 2015Q4

REPORT INFORMATION
  Report Type: Spontaneous
  Country: US (occurrence: US)
  Receive Date: 20151229
  Receipt Date: 20151229
  Transmission Date: 20160305
  Serious: No
  Sender: FDA-Public Use
  Company Number: US-BAYER-2015-496433

PATIENT
  Age: 77 Year
  Sex: Female

DRUGS (3)
  1. CIPRO [Suspect]
     Active Substance: CIPROFLOXACIN HYDROCHLORIDE
     Dosage: UNK
     Dates: start: 201509
  2. NYSTATIN. [Suspect]
     Active Substance: NYSTATIN
     Dosage: UNK
     Route: 058
     Dates: end: 20151001
  3. HUMIRA [Suspect]
     Active Substance: ADALIMUMAB
     Indication: CROHN^S DISEASE
     Dosage: 40 MG, Q2WK
     Dates: start: 20150603

REACTIONS (5)
  - Vision blurred [None]
  - Candida infection [Recovered/Resolved]
  - Rash macular [None]
  - Cataract [None]
  - Acne [None]

NARRATIVE: CASE EVENT DATE: 2015
